FAERS Safety Report 11221849 (Version 2)
Quarter: 2015Q3

REPORT INFORMATION
  Report Type: Spontaneous
  Country: BG (occurrence: BG)
  Receive Date: 20150626
  Receipt Date: 20150907
  Transmission Date: 20151125
  Serious: Yes (Hospitalization)
  Sender: FDA-Public Use
  Company Number: BG-ASTRAZENECA-2015SE61852

PATIENT
  Age: 48 Year
  Sex: Male

DRUGS (3)
  1. SYMBICORT [Suspect]
     Active Substance: BUDESONIDE\FORMOTEROL FUMARATE DIHYDRATE
     Indication: ASTHMA
     Dosage: 160/4.5 MCG, 2 X 2 INHALATIONS DAILY
     Route: 055
     Dates: start: 20140701
  2. AVAMYS [Concomitant]
     Active Substance: FLUTICASONE FUROATE
     Dosage: 1 X 2 SPRAYS (AT THE TIME OF DIAGNOSING)
     Route: 065
  3. SINGULAIR [Suspect]
     Active Substance: MONTELUKAST SODIUM
     Route: 065

REACTIONS (2)
  - Multi-organ failure [Unknown]
  - Allergic granulomatous angiitis [Unknown]

NARRATIVE: CASE EVENT DATE: 201408
